FAERS Safety Report 9473068 (Version 3)
Quarter: 2014Q3

REPORT INFORMATION
  Report Type: Spontaneous
  Country: US (occurrence: US)
  Receive Date: 20130823
  Receipt Date: 20140808
  Transmission Date: 20150326
  Serious: Yes (Hospitalization)
  Sender: FDA-Public Use
  Company Number: US-BRISTOL-MYERS SQUIBB COMPANY-17400680

PATIENT
  Age: 69 Year
  Sex: Male
  Weight: 80.72 kg

DRUGS (6)
  1. CENTRUM SILVER [Concomitant]
     Active Substance: VITAMINS
  2. JANUVIA [Concomitant]
     Active Substance: SITAGLIPTIN PHOSPHATE
     Dosage: TAB 100MG
  3. XANAX [Concomitant]
     Active Substance: ALPRAZOLAM
     Dosage: TAB 0.25MG
  4. DIOVAN [Concomitant]
     Active Substance: VALSARTAN
     Dosage: TAB 40MG
  5. SPRYCEL [Suspect]
     Active Substance: DASATINIB
     Indication: CHRONIC MYELOID LEUKAEMIA
     Dosage: 1 DF:1 TAB OF SPRYCEL 100MG
     Route: 048
     Dates: start: 20130111
  6. TYLENOL [Concomitant]
     Active Substance: ACETAMINOPHEN
     Dosage: 8 HR TAB 650MG

REACTIONS (4)
  - Laboratory test abnormal [Unknown]
  - Nausea [Recovering/Resolving]
  - Sinusitis [Recovering/Resolving]
  - Pleural effusion [Unknown]

NARRATIVE: CASE EVENT DATE: 20130119
